FAERS Safety Report 6287614-1 (Version None)
Quarter: 2009Q3

REPORT INFORMATION
  Report Type: 
  Country: None (occurrence: None)
  Receive Date: 20090727
  Receipt Date: 20090727
  Transmission Date: 20100115
  Serious: Yes (Life-Threatening)
  Sender: FDA-Public Use
  Company Number: None

PATIENT
  Age: 58 Year
  Sex: Female
  Weight: 88.4514 kg

DRUGS (1)
  1. CLINDAMYCIN HCL [Suspect]
     Indication: STAPHYLOCOCCAL INFECTION
     Dosage: 300 MG FOUR TIMES DAILY ORAL
     Route: 048
     Dates: start: 20090110, end: 20090117

REACTIONS (1)
  - CLOSTRIDIAL INFECTION [None]
